FAERS Safety Report 9158976 (Version 1)
Quarter: 2013Q1

REPORT INFORMATION
  Report Type: Spontaneous
  Country: AR (occurrence: None)
  Receive Date: 20130213
  Receipt Date: 20130213
  Transmission Date: 20140127
  Serious: Yes (Other)
  Sender: FDA-Public Use
  Company Number: AR-1196573

PATIENT
  Age: 43 Year
  Sex: Male

DRUGS (2)
  1. CILOXAN [Suspect]
     Indication: POSTOPERATIVE CARE
     Dosage: (1 DF QID SUSPENSION
     Route: 047
  2. MAXIDEX [Suspect]
     Indication: POSTOPERATIVE CARE
     Dosage: (1 DF QID OPHTHALMIC SUSPENSION )
     Route: 047

REACTIONS (8)
  - Visual acuity reduced [None]
  - Corneal infiltrates [None]
  - Corneal oedema [None]
  - Fusarium infection [None]
  - Corneal scar [None]
  - Corneal epithelium defect [None]
  - Keratitis fungal [None]
  - Therapeutic response decreased [None]
